FAERS Safety Report 11151509 (Version 4)
Quarter: 2015Q3

REPORT INFORMATION
  Report Type: Report from Study
  Country: US (occurrence: US)
  Receive Date: 20150601
  Receipt Date: 20150811
  Transmission Date: 20151125
  Serious: Yes (Hospitalization)
  Sender: FDA-Public Use
  Company Number: US-BIOGENIDEC-2015BI040777

PATIENT
  Age: 76 Year
  Sex: Female

DRUGS (1)
  1. TECFIDERA [Suspect]
     Active Substance: DIMETHYL FUMARATE
     Indication: MULTIPLE SCLEROSIS
     Route: 048
     Dates: start: 20150220

REACTIONS (3)
  - Hip fracture [Recovered/Resolved]
  - Fall [Recovered/Resolved]
  - Balance disorder [Recovered/Resolved]

NARRATIVE: CASE EVENT DATE: 20150321
